FAERS Safety Report 4634581-X (Version None)
Quarter: 2005Q2

REPORT INFORMATION
  Report Type: 
  Country: None (occurrence: None)
  Receive Date: 20050411
  Receipt Date: 20050401
  Transmission Date: 20051028
  Serious: Yes (Death, Hospitalization, Other)
  Sender: FDA-Public Use
  Company Number: 2005-01-1951

PATIENT
  Age: 49 Year
  Sex: Male

DRUGS (8)
  1. PEG-INTERFERON ALFA-2B INJECTABLE POWDER [Suspect]
     Indication: HEPATITIS C
     Dosage: 150 MCG QWK SUBCUTANEOUS
     Route: 058
     Dates: start: 20040729, end: 20041202
  2. RIBAVIRIN [Suspect]
     Indication: HEPATITIS C
     Dosage: 1200 MG OD ORAL
     Route: 048
     Dates: start: 20040729, end: 20041202
  3. ALDACTONE [Concomitant]
  4. PANTOPRAZOLE SODIUM [Concomitant]
  5. LACTULOSE [Concomitant]
  6. INDERAL [Concomitant]
  7. VITAMINS/MINERALS/DIETARY SUPPLEMENTS [Concomitant]
  8. LASIX [Concomitant]

REACTIONS (15)
  - ANOREXIA [None]
  - ASTHENIA [None]
  - CHOLELITHIASIS [None]
  - COMA [None]
  - FAECAL OCCULT BLOOD POSITIVE [None]
  - GALLBLADDER DISORDER [None]
  - HEPATIC CIRRHOSIS [None]
  - HEPATIC ENZYME INCREASED [None]
  - HEPATORENAL FAILURE [None]
  - JAUNDICE [None]
  - MACROCYTOSIS [None]
  - PLEURAL EFFUSION [None]
  - RENAL IMPAIRMENT [None]
  - SPLENOMEGALY [None]
  - THROMBOCYTOPENIA [None]
